FAERS Safety Report 11243847 (Version 3)
Quarter: 2015Q3

REPORT INFORMATION
  Report Type: Report from Study
  Country: US (occurrence: US)
  Receive Date: 20150707
  Receipt Date: 20150804
  Transmission Date: 20151125
  Serious: Yes (Hospitalization, Disabling)
  Sender: FDA-Public Use
  Company Number: US-ROCHE-1600043

PATIENT
  Age: 67 Year
  Sex: Female
  Weight: 65.83 kg

DRUGS (14)
  1. PERJETA [Suspect]
     Active Substance: PERTUZUMAB
     Route: 042
  2. IXEMPRA [Concomitant]
     Active Substance: IXABEPILONE
     Indication: BREAST CANCER METASTATIC
  3. CYTOXAN [Concomitant]
     Active Substance: CYCLOPHOSPHAMIDE
     Indication: BREAST CANCER METASTATIC
  4. RADIATION TREATMENT [Concomitant]
     Active Substance: RADIATION THERAPY
     Indication: BREAST CANCER METASTATIC
  5. PRILOSEC [Concomitant]
     Active Substance: OMEPRAZOLE MAGNESIUM
  6. ZANTAC [Suspect]
     Active Substance: RANITIDINE HYDROCHLORIDE
     Indication: PRURITUS
     Route: 065
  7. HERCEPTIN [Suspect]
     Active Substance: TRASTUZUMAB
     Indication: BREAST CANCER METASTATIC
     Route: 042
     Dates: start: 20101123, end: 201110
  8. PERJETA [Suspect]
     Active Substance: PERTUZUMAB
     Indication: BREAST CANCER METASTATIC
     Route: 042
     Dates: start: 20101123, end: 20111010
  9. FLAGYL [Concomitant]
     Active Substance: METRONIDAZOLE\METRONIDAZOLE HYDROCHLORIDE
     Indication: ROSACEA
     Route: 065
  10. HERCEPTIN [Suspect]
     Active Substance: TRASTUZUMAB
     Route: 042
     Dates: start: 20101123, end: 201110
  11. ATIVAN [Concomitant]
     Active Substance: LORAZEPAM
     Indication: SLEEP DISORDER
  12. ALLERGY SHOT [Concomitant]
     Active Substance: UNSPECIFIED INGREDIENT
     Indication: HYPERSENSITIVITY
     Route: 065
  13. TAXOTERE [Concomitant]
     Active Substance: DOCETAXEL
     Indication: BREAST CANCER
     Route: 042
     Dates: start: 20141219
  14. SYNTHROID [Concomitant]
     Active Substance: LEVOTHYROXINE SODIUM
     Indication: THYROID DISORDER
     Route: 048
     Dates: start: 1977

REACTIONS (14)
  - Rash [Not Recovered/Not Resolved]
  - Back pain [Unknown]
  - Nail disorder [Recovered/Resolved]
  - Metastatic neoplasm [Unknown]
  - Deep vein thrombosis [Recovered/Resolved]
  - Fall [Recovered/Resolved]
  - Thinking abnormal [Not Recovered/Not Resolved]
  - Diarrhoea [Unknown]
  - Cellulitis [Unknown]
  - Influenza [Recovered/Resolved]
  - Insomnia [Not Recovered/Not Resolved]
  - Candida infection [Recovered/Resolved]
  - Pruritus [Not Recovered/Not Resolved]
  - Nail growth abnormal [Unknown]

NARRATIVE: CASE EVENT DATE: 2011
